FAERS Safety Report 9221692 (Version 2)
Quarter: 2013Q2

REPORT INFORMATION
  Report Type: Spontaneous
  Country: US (occurrence: None)
  Receive Date: 20130408
  Receipt Date: 20130509
  Transmission Date: 20140414
  Serious: Yes (Hospitalization)
  Sender: FDA-Public Use
  Company Number: 147418

PATIENT
  Age: 78 Year
  Sex: Female

DRUGS (1)
  1. LEUCOVORIN CALCIUM FOR INJ. 50MG-BEDFORD LABS, INC. [Suspect]
     Indication: COLON CANCER
     Dates: start: 20130220

REACTIONS (4)
  - Herpes zoster [None]
  - Stomatitis [None]
  - Anaemia [None]
  - Hypertension [None]
